FAERS Safety Report 19771839 (Version 1)
Quarter: 2021Q3

REPORT INFORMATION
  Report Type: Spontaneous
  Country: ES (occurrence: ES)
  Receive Date: 20210901
  Receipt Date: 20210901
  Transmission Date: 20211014
  Serious: Yes (Hospitalization)
  Sender: FDA-Public Use
  Company Number: ES-MYLANLABS-2021M1056960

PATIENT
  Age: 59 Year

DRUGS (4)
  1. DEXAMETHASONE. [Suspect]
     Active Substance: DEXAMETHASONE
     Indication: PRIMARY AMYLOIDOSIS
     Dosage: UNK
     Route: 065
  2. CYCLOPHOSPHAMIDE. [Suspect]
     Active Substance: CYCLOPHOSPHAMIDE
     Indication: PRIMARY AMYLOIDOSIS
     Dosage: UNK
     Route: 065
  3. VELCADE [Suspect]
     Active Substance: BORTEZOMIB
     Indication: PRIMARY AMYLOIDOSIS
     Dosage: UNK
     Route: 065
  4. RITUXIMAB. [Suspect]
     Active Substance: RITUXIMAB
     Indication: PRIMARY AMYLOIDOSIS
     Route: 065

REACTIONS (4)
  - Amyloidosis [Unknown]
  - Vomiting [Unknown]
  - Product use in unapproved indication [Unknown]
  - Off label use [Unknown]
